FAERS Safety Report 18239925 (Version 1)
Quarter: 2020Q3

REPORT INFORMATION
  Report Type: Spontaneous
  Country: US (occurrence: US)
  Receive Date: 20200908
  Receipt Date: 20200908
  Transmission Date: 20201103
  Serious: No
  Sender: FDA-Public Use
  Company Number: US-ITALFARMACO SPA-2089469

PATIENT
  Age: 43 Year
  Sex: Female

DRUGS (4)
  1. MULTIVITAMIN NOS [Concomitant]
     Active Substance: VITAMINS
  2. BACLOFEN. [Concomitant]
     Active Substance: BACLOFEN
  3. TIGLUTIK [Suspect]
     Active Substance: RILUZOLE
     Indication: AMYOTROPHIC LATERAL SCLEROSIS
     Dates: start: 20200602
  4. AIRBORNE [Concomitant]
     Active Substance: HERBALS\MINERALS\VITAMINS

REACTIONS (1)
  - Abdominal pain upper [Not Recovered/Not Resolved]
